FAERS Safety Report 25668650 (Version 1)
Quarter: 2025Q3

REPORT INFORMATION
  Report Type: Spontaneous
  Country: US (occurrence: US)
  Receive Date: 20250812
  Receipt Date: 20250812
  Transmission Date: 20251021
  Serious: No
  Sender: AMGEN
  Company Number: US-AMGEN-USASP2025156628

PATIENT
  Age: 70 Year
  Sex: Female

DRUGS (4)
  1. OTEZLA [Suspect]
     Active Substance: APREMILAST
     Indication: Psoriasis
     Dosage: 20 MILLIGRAM, BID
     Route: 048
     Dates: start: 20250802
  2. IXEKIZUMAB [Concomitant]
     Active Substance: IXEKIZUMAB
     Indication: Psoriasis
     Route: 065
  3. IXEKIZUMAB [Concomitant]
     Active Substance: IXEKIZUMAB
     Route: 065
  4. IXEKIZUMAB [Concomitant]
     Active Substance: IXEKIZUMAB
     Route: 065

REACTIONS (4)
  - Headache [Recovered/Resolved]
  - Faeces soft [Recovered/Resolved]
  - Brain fog [Recovering/Resolving]
  - Product communication issue [Unknown]

NARRATIVE: CASE EVENT DATE: 20250805
